FAERS Safety Report 6837194-4 (Version None)
Quarter: 2010Q3

REPORT INFORMATION
  Report Type: 
  Country: None (occurrence: None)
  Receive Date: 20100713
  Receipt Date: 20070507
  Transmission Date: 20110219
  Serious: No
  Sender: FDA-Public Use
  Company Number: US-PFIZER INC-2007037951

PATIENT
  Sex: Female
  Weight: 91.8 kg

DRUGS (9)
  1. CHANTIX [Suspect]
     Indication: SMOKING CESSATION THERAPY
     Dates: start: 20070401
  2. ATENOLOL [Concomitant]
  3. ACETYLSALICYLIC ACID [Concomitant]
  4. METFORMIN [Concomitant]
  5. GLIPIZIDE [Concomitant]
  6. BOOTS INDIGESTION TABLETS [Concomitant]
     Indication: DYSPEPSIA
  7. ZOCOR [Concomitant]
  8. CELEXA [Concomitant]
     Indication: DEPRESSION
  9. WELLBUTRIN [Concomitant]
     Indication: DEPRESSION

REACTIONS (4)
  - ANXIETY [None]
  - CRYING [None]
  - DEPRESSED MOOD [None]
  - EMOTIONAL DISORDER [None]
